FAERS Safety Report 8314690-4 (Version None)
Quarter: 2012Q2

REPORT INFORMATION
  Report Type: 
  Country: None (occurrence: None)
  Receive Date: 20120426
  Receipt Date: 20120417
  Transmission Date: 20120825
  Serious: No
  Sender: FDA-Public Use
  Company Number: DE-ELI_LILLY_AND_COMPANY-DE201204005976

PATIENT
  Sex: Female

DRUGS (10)
  1. CYMBALTA [Suspect]
     Dosage: 60 MG, UNKNOWN
     Dates: start: 20120411, end: 20120416
  2. AGGRENOX [Concomitant]
     Dosage: UNK, BID
  3. METOPROLOL TARTRATE [Concomitant]
  4. SODIUM CHLORIDE [Concomitant]
     Dosage: UNK, QID
  5. METFORMIN HCL [Concomitant]
     Dosage: 500 DF, BID
  6. CYMBALTA [Suspect]
     Indication: DEPRESSION
     Dosage: 30 MG, UNKNOWN
     Route: 048
     Dates: start: 20120403, end: 20120413
  7. DIOVAN [Concomitant]
     Dosage: 320 DF, EACH MORNING
  8. JANUVIA [Concomitant]
     Dosage: 100 DF, EACH MORNING
  9. FLUVASTATIN SODIUM [Concomitant]
     Dosage: 8 DF, QD
  10. AMLODIPINE BESYLATE [Concomitant]
     Dosage: UNK, EACH MORNING

REACTIONS (1)
  - LIVER FUNCTION TEST ABNORMAL [None]
